FAERS Safety Report 5760634-9 (Version None)
Quarter: 2008Q2

REPORT INFORMATION
  Report Type: 
  Country: None (occurrence: None)
  Receive Date: 20080602
  Receipt Date: 20080527
  Transmission Date: 20081010
  Serious: Yes (Other)
  Sender: FDA-Public Use
  Company Number: 2008SP010028

PATIENT
  Age: 84 Year
  Sex: Female
  Weight: 52.1637 kg

DRUGS (5)
  1. CLARITIN [Suspect]
     Indication: RHINORRHOEA
     Dosage: 10 MG;ONCE;PO
     Route: 048
     Dates: start: 20080508, end: 20080508
  2. CLARITIN [Suspect]
     Indication: SNEEZING
     Dosage: 10 MG;ONCE;PO
     Route: 048
     Dates: start: 20080508, end: 20080508
  3. ATENOLOL [Concomitant]
  4. DOXAZOSIN MESYLATE [Concomitant]
  5. LEVOTHYROXINE SODIUM [Concomitant]

REACTIONS (2)
  - CONDITION AGGRAVATED [None]
  - HYPERTENSION [None]
